FAERS Safety Report 7194294-X (Version None)
Quarter: 2010Q4

REPORT INFORMATION
  Report Type: 
  Country: None (occurrence: None)
  Receive Date: 20101223
  Receipt Date: 20101210
  Transmission Date: 20110411
  Serious: Yes (Other)
  Sender: FDA-Public Use
  Company Number: PHHY2010FR87053

PATIENT
  Sex: Female

DRUGS (4)
  1. SANDOSTATIN LAR [Suspect]
     Indication: ACROMEGALY
     Dosage: 20 MG, QMO
     Dates: start: 19990101
  2. SANDOSTATIN LAR [Suspect]
     Dosage: 30 MG, QMO
  3. SANDOSTATIN LAR [Suspect]
     Dosage: UNK MG, UNK
     Dates: start: 20031110
  4. NORPROLAC [Concomitant]
     Indication: ACROMEGALY
     Dosage: 75 MG DAILY

REACTIONS (5)
  - BLOOD GROWTH HORMONE INCREASED [None]
  - DRUG EXPOSURE DURING PREGNANCY [None]
  - GESTATIONAL DIABETES [None]
  - INSULIN-LIKE GROWTH FACTOR INCREASED [None]
  - NORMAL NEWBORN [None]
